FAERS Safety Report 8325674-4 (Version None)
Quarter: 2012Q2

REPORT INFORMATION
  Report Type: 
  Country: None (occurrence: None)
  Receive Date: 20120501
  Receipt Date: 20120501
  Transmission Date: 20120825
  Serious: Yes (Other)
  Sender: FDA-Public Use
  Company Number: None

PATIENT
  Sex: Female
  Weight: 109.76 kg

DRUGS (4)
  1. CELEXA [Suspect]
     Indication: DEPRESSION
     Dosage: ONE TAB
     Route: 048
     Dates: start: 20120328, end: 20120407
  2. LISINOPRIL [Concomitant]
  3. SUSTENNA [Concomitant]
  4. VERAPAMIL [Concomitant]

REACTIONS (2)
  - NAUSEA [None]
  - SYNCOPE [None]
